FAERS Safety Report 8902083 (Version 1)
Quarter: 2012Q4

REPORT INFORMATION
  Report Type: Report from Study
  Country: CA (occurrence: CA)
  Receive Date: 20121112
  Receipt Date: 20121112
  Transmission Date: 20130627
  Serious: Yes (Other)
  Sender: FDA-Public Use
  Company Number: CA-JNJFOC-20121102090

PATIENT
  Sex: Female

DRUGS (4)
  1. REMICADE [Suspect]
     Indication: CROHN^S DISEASE
     Route: 042
     Dates: start: 20090924
  2. ACLASTA [Concomitant]
     Route: 065
  3. PREDNISONE [Concomitant]
     Route: 065
  4. VITAMIN D [Concomitant]
     Route: 065

REACTIONS (2)
  - Cyst [Unknown]
  - Infection [Unknown]
